FAERS Safety Report 10147874 (Version 1)
Quarter: 2014Q2

REPORT INFORMATION
  Report Type: Spontaneous
  Country: US (occurrence: US)
  Receive Date: 20140501
  Receipt Date: 20140501
  Transmission Date: 20141212
  Serious: No
  Sender: FDA-Public Use
  Company Number: US-AMGEN-USASP2014025223

PATIENT
  Age: 58 Year
  Sex: Female

DRUGS (2)
  1. ENBREL [Suspect]
     Indication: RHEUMATOID ARTHRITIS
     Dosage: UNK
     Route: 065
     Dates: start: 1999
  2. METHOTREXATE [Concomitant]
     Dosage: UNK

REACTIONS (4)
  - Injection site extravasation [Unknown]
  - Mouth ulceration [Unknown]
  - Mobility decreased [Unknown]
  - Injection site bruising [Unknown]
